FAERS Safety Report 9629685 (Version 3)
Quarter: 2013Q4

REPORT INFORMATION
  Report Type: Report from Study
  Country: TR (occurrence: TR)
  Receive Date: 20131017
  Receipt Date: 20131031
  Transmission Date: 20140711
  Serious: Yes (Other)
  Sender: FDA-Public Use
  Company Number: TR-ROCHE-GNE263178

PATIENT
  Age: 14 Year
  Sex: Male

DRUGS (15)
  1. ALTEPLASE [Suspect]
     Indication: ENDOCARDITIS
     Dosage: 0.2 MG/K/HRS,
     Route: 042
  2. ALTEPLASE [Suspect]
     Indication: INTRACARDIAC THROMBUS
     Dosage: 0.2 MG/K/HRS
     Route: 042
  3. ALTEPLASE [Suspect]
     Dosage: 0.02 MG/K/HRS, LENGTH OF TREATMENT WAS 8 HOURS
     Route: 042
  4. CYTOSINE ARABINOSIDE [Concomitant]
     Indication: ACUTE MYELOID LEUKAEMIA
     Route: 042
  5. DAUNORUBICIN [Concomitant]
     Indication: ACUTE MYELOID LEUKAEMIA
     Route: 042
  6. ETOPOSIDE [Concomitant]
     Indication: ACUTE MYELOID LEUKAEMIA
     Route: 042
  7. CEFTAZIDIME [Concomitant]
     Indication: PRODUCT USED FOR UNKNOWN INDICATION
     Dosage: 100 MG/KG, QD
     Route: 042
  8. AMIKACIN [Concomitant]
     Indication: PRODUCT USED FOR UNKNOWN INDICATION
     Dosage: 15 MG/KG, QD
     Route: 065
  9. VANCOMYCIN [Concomitant]
     Indication: STAPHYLOCOCCAL INFECTION
     Dosage: 40 MG/KG, QD
     Route: 065
  10. AMPHOTERICIN-B [Concomitant]
     Indication: STAPHYLOCOCCAL INFECTION
     Route: 065
  11. IMMUNOGLOBULIN [Concomitant]
     Indication: HYPOGAMMAGLOBULINAEMIA
     Dosage: UNK, 3/WEEK
     Route: 042
  12. MEROPENEM [Concomitant]
     Indication: STAPHYLOCOCCAL INFECTION
     Dosage: 100 MG/KG, UNK
     Route: 065
  13. LIPOSOMAL AMPHOTERICIN B [Concomitant]
     Indication: LEUKOPENIA
     Dosage: 3 MG/KG, QD
     Route: 065
  14. FRESH FROZEN PLASMA [Concomitant]
     Indication: PROPHYLAXIS
  15. PLATELETS [Concomitant]
     Indication: PROPHYLAXIS

REACTIONS (6)
  - Catheter site haemorrhage [Recovered/Resolved]
  - Epistaxis [Recovered/Resolved]
  - Haemorrhage [Recovered/Resolved]
  - Activated partial thromboplastin time prolonged [Recovered/Resolved]
  - Thrombin time prolonged [Recovered/Resolved]
  - Blood fibrinogen decreased [Unknown]
